FAERS Safety Report 15462936 (Version 5)
Quarter: 2019Q2

REPORT INFORMATION
  Report Type: Spontaneous
  Country: US (occurrence: US)
  Receive Date: 20181004
  Receipt Date: 20190614
  Transmission Date: 20190711
  Serious: No
  Sender: FDA-Public Use
  Company Number: US-PFIZER INC-2018398501

PATIENT
  Age: 57 Year
  Sex: Female
  Weight: 62 kg

DRUGS (2)
  1. PREMPRO [Suspect]
     Active Substance: ESTROGENS, CONJUGATED\MEDROXYPROGESTERONE ACETATE
     Dosage: UNK, 1X/DAY (0.625MG/5MG TABLET-1 TABLET TAKEN BY MOUTH ONCE DAILY)
     Route: 048
  2. PREMPRO [Suspect]
     Active Substance: ESTROGENS, CONJUGATED\MEDROXYPROGESTERONE ACETATE
     Indication: HOT FLUSH
     Dosage: [[ESTROGENS CONJUGATED 0.625MG]-[MEDROXYPROGESTERONE ACETATE 5MG], 1X/DAY (EVERY MORNING)
     Route: 048

REACTIONS (1)
  - Pain [Not Recovered/Not Resolved]

NARRATIVE: CASE EVENT DATE: 201806
